FAERS Safety Report 25331910 (Version 2)
Quarter: 2025Q4

REPORT INFORMATION
  Report Type: Report from Study
  Country: US (occurrence: US)
  Receive Date: 20250519
  Receipt Date: 20251202
  Transmission Date: 20260119
  Serious: Yes (Other)
  Sender: TAKEDA
  Company Number: US-TAKEDA-2025TUS033318

PATIENT
  Age: 41 Year
  Sex: Female

DRUGS (5)
  1. VEDOLIZUMAB [Suspect]
     Active Substance: VEDOLIZUMAB
     Indication: Colitis ulcerative
     Dosage: 300 MILLIGRAM
  2. VEDOLIZUMAB [Suspect]
     Active Substance: VEDOLIZUMAB
     Indication: Colitis ulcerative
     Dosage: 108 MILLIGRAM, Q2WEEKS
     Dates: start: 20250507, end: 20251126
  3. VEDOLIZUMAB [Suspect]
     Active Substance: VEDOLIZUMAB
  4. VEDOLIZUMAB [Suspect]
     Active Substance: VEDOLIZUMAB
  5. VEDOLIZUMAB [Suspect]
     Active Substance: VEDOLIZUMAB

REACTIONS (13)
  - Immunosuppression [Unknown]
  - Nerve injury [Unknown]
  - Frequent bowel movements [Unknown]
  - Diarrhoea [Unknown]
  - Disturbance in attention [Unknown]
  - Iron deficiency [Unknown]
  - Obesity [Unknown]
  - Anaemia [Unknown]
  - Migraine [Unknown]
  - Essential hypertension [Unknown]
  - Asthma [Unknown]
  - Dizziness [Unknown]
  - Constipation [Unknown]
